FAERS Safety Report 5945775-5 (Version None)
Quarter: 2008Q4

REPORT INFORMATION
  Report Type: 
  Country: None (occurrence: None)
  Receive Date: 20081106
  Receipt Date: 20081023
  Transmission Date: 20090506
  Serious: Yes (Hospitalization, Other)
  Sender: FDA-Public Use
  Company Number: 231075K08USA

PATIENT
  Age: 56 Year
  Sex: Male

DRUGS (7)
  1. REBIF [Suspect]
     Indication: MULTIPLE SCLEROSIS
     Dosage: 44 MCG, 3 IN 1 WEEKS, SUBCUTANEOUS
     Route: 058
     Dates: start: 20070907
  2. NOVOLOG [Concomitant]
  3. QUININE (QUININE /00046701/) [Concomitant]
  4. MIRAPEX [Concomitant]
  5. ZOLOFT [Concomitant]
  6. TYLENOL (COTYLENOL) [Concomitant]
  7. REQUIP [Concomitant]

REACTIONS (6)
  - CORONARY ARTERY OCCLUSION [None]
  - FATIGUE [None]
  - FLUID RETENTION [None]
  - LOWER LIMB FRACTURE [None]
  - RIB FRACTURE [None]
  - ROAD TRAFFIC ACCIDENT [None]
